FAERS Safety Report 4975452-9 (Version None)
Quarter: 2006Q2

REPORT INFORMATION
  Report Type: 
  Country: None (occurrence: None)
  Receive Date: 20060418
  Receipt Date: 20060411
  Transmission Date: 20061013
  Serious: Yes (Hospitalization)
  Sender: FDA-Public Use
  Company Number: GB-AVENTIS-200613973GDDC

PATIENT
  Age: 75 Year
  Sex: Male

DRUGS (2)
  1. LANTUS [Suspect]
     Dosage: DOSE: UNK
  2. METFORMIN [Concomitant]
     Dosage: DOSE: UNK

REACTIONS (2)
  - HYPOGLYCAEMIA [None]
  - VIRAL INFECTION [None]
